FAERS Safety Report 18994810 (Version 5)
Quarter: 2021Q4

REPORT INFORMATION
  Report Type: Report from Study
  Country: US (occurrence: US)
  Receive Date: 20210311
  Receipt Date: 20211011
  Transmission Date: 20220303
  Serious: No
  Sender: FDA-Public Use
  Company Number: NVSC2021US045471

PATIENT
  Sex: Female

DRUGS (3)
  1. KESIMPTA [Suspect]
     Active Substance: OFATUMUMAB
     Indication: Relapsing-remitting multiple sclerosis
     Dosage: 20 MG, QMO
     Route: 058
     Dates: start: 20200925
  2. KESIMPTA [Suspect]
     Active Substance: OFATUMUMAB
     Indication: Multiple sclerosis
     Dosage: UNK
     Route: 050
  3. KESIMPTA [Suspect]
     Active Substance: OFATUMUMAB
     Dosage: UNK
     Route: 065
     Dates: start: 20200905

REACTIONS (16)
  - Malaise [Unknown]
  - Migraine [Unknown]
  - Eye disorder [Unknown]
  - Vertigo positional [Unknown]
  - Motion sickness [Unknown]
  - Arthralgia [Unknown]
  - Pain in extremity [Unknown]
  - Insomnia [Unknown]
  - Temperature intolerance [Unknown]
  - Visual impairment [Unknown]
  - Fatigue [Unknown]
  - Paraesthesia [Unknown]
  - Depression [Unknown]
  - Headache [Unknown]
  - Injection site haemorrhage [Unknown]
  - Erythema [Unknown]
